FAERS Safety Report 5754875-4 (Version None)
Quarter: 2008Q2

REPORT INFORMATION
  Report Type: 
  Country: None (occurrence: None)
  Receive Date: 20080527
  Receipt Date: 20080515
  Transmission Date: 20081010
  Serious: Yes (Other)
  Sender: FDA-Public Use
  Company Number: JPI-P-003671

PATIENT
  Age: 36 Year
  Sex: Female
  Weight: 99.7913 kg

DRUGS (2)
  1. XYREM [Suspect]
     Indication: CATAPLEXY
     Dosage: 6 GM (3 GM, 2 IN  IN 1 D), ORAL
     Route: 048
     Dates: start: 20080101, end: 20080511
  2. XYREM [Suspect]
     Indication: NARCOLEPSY
     Dosage: 6 GM (3 GM, 2 IN  IN 1 D), ORAL
     Route: 048
     Dates: start: 20080101, end: 20080511

REACTIONS (1)
  - ANAPHYLACTIC REACTION [None]
